FAERS Safety Report 10059896 (Version 1)
Quarter: 2014Q2

REPORT INFORMATION
  Report Type: Spontaneous
  Country: CA (occurrence: CA)
  Receive Date: 20140404
  Receipt Date: 20140404
  Transmission Date: 20141212
  Serious: Yes (Other)
  Sender: FDA-Public Use
  Company Number: CA-GLAXOSMITHKLINE-A1067728A

PATIENT
  Age: 58 Year
  Sex: Female

DRUGS (5)
  1. LAMICTAL [Suspect]
     Indication: PRODUCT USED FOR UNKNOWN INDICATION
     Dosage: 200MG TWICE PER DAY
     Route: 048
  2. KERI LOTION [Suspect]
     Indication: PRODUCT USED FOR UNKNOWN INDICATION
     Route: 061
  3. TRILEPTAL [Suspect]
     Indication: PRODUCT USED FOR UNKNOWN INDICATION
     Dosage: 600MG TWICE PER DAY
     Route: 048
  4. LAMICTAL [Suspect]
     Indication: PRODUCT USED FOR UNKNOWN INDICATION
     Dosage: 400MG TWICE PER DAY
     Route: 048
  5. TRILEPTAL [Suspect]
     Indication: PRODUCT USED FOR UNKNOWN INDICATION
     Route: 048

REACTIONS (14)
  - Acne [Unknown]
  - Cataract [Unknown]
  - Condition aggravated [Unknown]
  - Dermatitis allergic [Unknown]
  - Dermatitis infected [Unknown]
  - Eczema [Unknown]
  - Epilepsy [Unknown]
  - Feeling abnormal [Unknown]
  - Generalised tonic-clonic seizure [Unknown]
  - Hallucination [Unknown]
  - Intentional product misuse [Unknown]
  - Rash [Unknown]
  - Retinal detachment [Unknown]
  - Scab [Unknown]
